FAERS Safety Report 24050554 (Version 1)
Quarter: 2024Q3

REPORT INFORMATION
  Report Type: Spontaneous
  Country: US (occurrence: US)
  Receive Date: 20240704
  Receipt Date: 20240704
  Transmission Date: 20241017
  Serious: No
  Sender: SANDOZ
  Company Number: US-SANDOZ-SDZ2023US004459

PATIENT
  Age: 13 Year
  Sex: Male

DRUGS (2)
  1. OMNITROPE [Suspect]
     Active Substance: SOMATROPIN
     Indication: Product used for unknown indication
     Dosage: 1.3 MG (MILLIGRAM) ONCE DAILY
     Route: 058
     Dates: start: 20230712, end: 20230719
  2. OMNITROPE [Suspect]
     Active Substance: SOMATROPIN
     Indication: Product used for unknown indication
     Dosage: 1.3 MG (MILLIGRAM) ONCE DAILY
     Route: 058
     Dates: start: 20230712, end: 20230719

REACTIONS (2)
  - Circumstance or information capable of leading to medication error [Unknown]
  - Product leakage [Unknown]

NARRATIVE: CASE EVENT DATE: 20230712
